FAERS Safety Report 4862231-6 (Version None)
Quarter: 2005Q4

REPORT INFORMATION
  Report Type: 
  Country: None (occurrence: None)
  Receive Date: 20051221
  Receipt Date: 20051212
  Transmission Date: 20060501
  Serious: Yes (Other)
  Sender: FDA-Public Use
  Company Number: US-JNJFOC-20040406559

PATIENT
  Sex: Female
  Weight: 56.7 kg

DRUGS (15)
  1. REMICADE [Suspect]
     Indication: RHEUMATOID ARTHRITIS
     Dosage: 200 - 300 MG, 17 DOSES
     Route: 042
  2. PLAQUENIL [Concomitant]
  3. METHOTREXATE [Concomitant]
     Indication: RHEUMATOID ARTHRITIS
     Dosage: 12.5 MG TO 25 MG EVERY WEEK
  4. CALCIUM GLUCONATE [Concomitant]
  5. ESTRANCE [Concomitant]
  6. ACTONIL [Concomitant]
  7. FOLIC ACID [Concomitant]
  8. LEUCOVORIN CALCIUM [Concomitant]
  9. FOSAMAX [Concomitant]
  10. AMBIEN [Concomitant]
  11. AREDIA [Concomitant]
  12. ALTRACE [Concomitant]
  13. DIGOXIN [Concomitant]
  14. DIDRONEL [Concomitant]
  15. COUMADIN [Concomitant]

REACTIONS (2)
  - B-CELL LYMPHOMA [None]
  - HODGKIN'S DISEASE [None]
